FAERS Safety Report 5981797-6 (Version None)
Quarter: 2008Q4

REPORT INFORMATION
  Report Type: 
  Country: None (occurrence: None)
  Receive Date: 20081205
  Receipt Date: 20081128
  Transmission Date: 20090506
  Serious: Yes (Death, Hospitalization)
  Sender: FDA-Public Use
  Company Number: IT-AMGEN-UK250420

PATIENT
  Sex: Male

DRUGS (14)
  1. PANITUMUMAB [Suspect]
     Indication: COLORECTAL CANCER
     Route: 042
     Dates: start: 20070725
  2. UNSPECIFIED STEROIDS [Suspect]
     Route: 065
  3. FUROSEMIDE [Concomitant]
     Route: 065
     Dates: start: 20071103
  4. FENTANYL-100 [Concomitant]
     Route: 065
  5. METHYLPREDNISOLONE 16MG TAB [Concomitant]
     Route: 065
     Dates: start: 20071102, end: 20071108
  6. RAMIPRIL [Concomitant]
     Route: 065
  7. AMIODARONE HCL [Concomitant]
     Route: 065
  8. NADROPARIN CALCIUM [Concomitant]
     Route: 065
  9. CARVEDILOL [Concomitant]
     Route: 065
  10. OMEPRAZOLE [Concomitant]
     Route: 065
  11. ROCEPHIN [Concomitant]
     Route: 065
     Dates: start: 20071027, end: 20071101
  12. LEVOFLOXACIN [Concomitant]
     Route: 065
     Dates: start: 20071027, end: 20071101
  13. CIPROFLOXACIN HCL [Concomitant]
     Route: 065
     Dates: start: 20071105, end: 20071110
  14. CANRENOL [Concomitant]
     Route: 065
     Dates: start: 20071028, end: 20071101

REACTIONS (2)
  - BACK PAIN [None]
  - PNEUMONITIS [None]
